FAERS Safety Report 15750188 (Version 5)
Quarter: 2019Q1

REPORT INFORMATION
  Report Type: Spontaneous
  Country: JP (occurrence: JP)
  Receive Date: 20181221
  Receipt Date: 20190312
  Transmission Date: 20190417
  Serious: Yes (Hospitalization, Disabling, Other)
  Sender: FDA-Public Use
  Company Number: JP-BRISTOL-MYERS SQUIBB COMPANY-BMS-2018-120353

PATIENT
  Age: 49 Year
  Sex: Male
  Weight: 52 kg

DRUGS (4)
  1. OPDIVO [Suspect]
     Active Substance: NIVOLUMAB
     Indication: PRODUCT USED FOR UNKNOWN INDICATION
     Dosage: 148 MG
     Route: 041
     Dates: start: 20170807, end: 20170807
  2. OPDIVO [Suspect]
     Active Substance: NIVOLUMAB
     Indication: METASTATIC RENAL CELL CARCINOMA
     Dosage: 170 MG
     Route: 041
     Dates: start: 20170626, end: 20170626
  3. OPDIVO [Suspect]
     Active Substance: NIVOLUMAB
     Indication: PRODUCT USED FOR UNKNOWN INDICATION
     Dosage: 157 MG
     Route: 041
     Dates: start: 20170710, end: 20170724
  4. OPDIVO [Suspect]
     Active Substance: NIVOLUMAB
     Indication: PRODUCT USED FOR UNKNOWN INDICATION
     Dosage: 159 MG
     Route: 041
     Dates: start: 20170821, end: 20170821

REACTIONS (5)
  - Malignant neoplasm progression [Unknown]
  - Hyponatraemia [Recovering/Resolving]
  - Cellulitis [Recovering/Resolving]
  - Dyspnoea [Recovering/Resolving]
  - Pleural effusion [Unknown]

NARRATIVE: CASE EVENT DATE: 20170728
